FAERS Safety Report 8614946-1 (Version None)
Quarter: 2012Q3

REPORT INFORMATION
  Report Type: 
  Country: None (occurrence: None)
  Receive Date: 20120814
  Receipt Date: 20120814
  Transmission Date: 20120928
  Serious: Yes (Other)
  Sender: FDA-Public Use
  Company Number: None

PATIENT
  Sex: Female
  Weight: 69.4003 kg

DRUGS (1)
  1. CIPRO [Suspect]
     Indication: TOOTH DISORDER
     Dosage: 2 TABS DAILY
     Route: 004

REACTIONS (3)
  - DIARRHOEA [None]
  - PRODUCT SUBSTITUTION ISSUE [None]
  - MALAISE [None]
